FAERS Safety Report 9941358 (Version 1)
Quarter: 2014Q1

REPORT INFORMATION
  Report Type: Report from Study
  Country: US (occurrence: US)
  Receive Date: 20140303
  Receipt Date: 20140303
  Transmission Date: 20141002
  Serious: No
  Sender: FDA-Public Use
  Company Number: US-ABBVIE-13P-163-1042437-00

PATIENT
  Age: 44 Year
  Sex: Female

DRUGS (3)
  1. HUMIRA [Suspect]
     Indication: CROHN^S DISEASE
     Dates: start: 201112
  2. LOESTRIN 1.5/30 [Concomitant]
     Indication: CONTRACEPTION
  3. VALTREX [Concomitant]
     Indication: ORAL HERPES

REACTIONS (2)
  - Oral herpes [Recovered/Resolved]
  - Injection site pain [Recovered/Resolved]
